FAERS Safety Report 6282127-5 (Version None)
Quarter: 2009Q3

REPORT INFORMATION
  Report Type: 
  Country: None (occurrence: None)
  Receive Date: 20090724
  Receipt Date: 20090717
  Transmission Date: 20100115
  Serious: Yes (Other)
  Sender: FDA-Public Use
  Company Number: NZ-WYE-G03404609

PATIENT
  Sex: Female

DRUGS (9)
  1. VENLAFAXINE HYDROCHLORIDE [Suspect]
     Indication: MAJOR DEPRESSION
     Dosage: 300MG DAILY
     Route: 048
     Dates: start: 20070825, end: 20090416
  2. ZOPICLONE [Concomitant]
     Dosage: 7.5MG TOTAL DAILY DOSE 15-22.5MG
     Route: 048
  3. ACCUPRIL [Concomitant]
     Indication: HYPERTENSION
     Route: 048
  4. VITAMIN B-12 [Concomitant]
     Dosage: UNKNOWN
  5. NUROFEN [Concomitant]
     Indication: PAIN
     Dosage: AS REQUIRED
  6. PARACETAMOL [Concomitant]
     Indication: PAIN
     Dosage: AS REQUIRED
  7. DIHYDROCODEINE BITARTRATE INJ [Concomitant]
     Indication: PAIN
     Dosage: AS REQUIRED
  8. DIAZEPAM [Concomitant]
     Indication: ANXIOLYTIC THERAPY
     Route: 048
  9. ACYCLOVIR [Concomitant]
     Dosage: 800MG DAILY

REACTIONS (3)
  - CEREBRAL ATROPHY [None]
  - CHOREOATHETOSIS [None]
  - CONCOMITANT DISEASE PROGRESSION [None]
